FAERS Safety Report 20726623 (Version 2)
Quarter: 2022Q2

REPORT INFORMATION
  Report Type: Spontaneous
  Country: US (occurrence: US)
  Receive Date: 20220419
  Receipt Date: 20220607
  Transmission Date: 20220721
  Serious: No
  Sender: FDA-Public Use
  Company Number: US-PFIZER INC-202200550400

PATIENT
  Age: 50 Year
  Sex: Male

DRUGS (3)
  1. XELJANZ XR [Suspect]
     Active Substance: TOFACITINIB CITRATE
     Indication: Psoriatic arthropathy
     Dosage: 11 MG, 1X/DAY
     Route: 048
     Dates: start: 2019
  2. HUMIRA [Concomitant]
     Active Substance: ADALIMUMAB
     Dosage: UNK
  3. ENBREL [Concomitant]
     Active Substance: ETANERCEPT
     Dosage: UNK

REACTIONS (4)
  - Feeling abnormal [Recovering/Resolving]
  - Memory impairment [Unknown]
  - Product dose omission issue [Unknown]
  - Therapeutic product effect incomplete [Unknown]
